FAERS Safety Report 10548519 (Version 2)
Quarter: 2014Q4

REPORT INFORMATION
  Report Type: Spontaneous
  Country: US (occurrence: None)
  Receive Date: 20141024
  Receipt Date: 20141121
  Transmission Date: 20150529
  Serious: Yes (Disabling, Other)
  Sender: FDA-Public Use
  Company Number: 2014-20563

PATIENT
  Age: 76 Year
  Sex: Female

DRUGS (14)
  1. LUTEIN (XANTOFYL) [Concomitant]
  2. VITAMIN C [Concomitant]
     Active Substance: ASCORBIC ACID
  3. EYLEA [Suspect]
     Active Substance: AFLIBERCEPT
     Indication: MACULAR DEGENERATION
     Route: 031
     Dates: start: 20141016, end: 20141016
  4. ASPIRIN (ACETYLSALICYLIC ACID) [Concomitant]
     Active Substance: ASPIRIN
  5. DUREZOL (DIFLUPRENATE) [Concomitant]
  6. VYTORIN [Concomitant]
     Active Substance: EZETIMIBE\SIMVASTATIN
  7. MULTIVITAMIN (ASCOPRBIC ACID, CALCIUM PANTOTHENATE, ERGOCALCIFEROL, NICOTINAMIDE, PYRIDOXINE HYDROCHLORIDE, RETINOL, RIBOFLAVIN, THIAMINE HYDROCHLORIDE) [Concomitant]
  8. VITAMIN D (ERGOCALCIFEROL) [Concomitant]
     Active Substance: ERGOCALCIFEROL
  9. OMEPERAZOLE (OMEPRAZOLE) [Concomitant]
  10. COREG [Concomitant]
     Active Substance: CARVEDILOL
  11. OCUFLOX (OFLOXACIN) [Concomitant]
  12. SYNTHROID [Concomitant]
     Active Substance: LEVOTHYROXINE SODIUM
  13. PROBIOTIC (BIFIDOBACTERIUM LACTIS) [Concomitant]
  14. CALCIUM (CALCIUM) [Concomitant]
     Active Substance: CALCIUM

REACTIONS (3)
  - Blindness transient [None]
  - Eye inflammation [None]
  - Hypopyon [None]

NARRATIVE: CASE EVENT DATE: 20141019
